FAERS Safety Report 4639792-5 (Version None)
Quarter: 2005Q2

REPORT INFORMATION
  Report Type: 
  Country: None (occurrence: None)
  Receive Date: 20050328
  Receipt Date: 20050106
  Transmission Date: 20051028
  Serious: No
  Sender: FDA-Public Use
  Company Number: USA050187649

PATIENT
  Age: 8 Year
  Sex: Male

DRUGS (1)
  1. STRATTERA [Suspect]
     Indication: ATTENTION DEFICIT/HYPERACTIVITY DISORDER
     Dosage: 40 MG DAY
     Dates: start: 20040101, end: 20041230

REACTIONS (5)
  - CONVERSION DISORDER [None]
  - DRUG EFFECT DECREASED [None]
  - MICTURITION DISORDER [None]
  - URINARY INCONTINENCE [None]
  - URINARY RETENTION [None]
